FAERS Safety Report 9099906 (Version 2)
Quarter: 2013Q1

REPORT INFORMATION
  Report Type: Spontaneous
  Country: US (occurrence: US)
  Receive Date: 20130214
  Receipt Date: 20130312
  Transmission Date: 20140127
  Serious: No
  Sender: FDA-Public Use
  Company Number: US-TEVA-386072USA

PATIENT
  Sex: Female
  Weight: 52.21 kg

DRUGS (5)
  1. COPAXONE [Suspect]
     Indication: MULTIPLE SCLEROSIS
     Dosage: 20 MILLIGRAM DAILY;
     Route: 058
     Dates: start: 20100823
  2. NEURONTIN [Concomitant]
     Indication: NEUROPATHY PERIPHERAL
     Dosage: 1800 MICROGRAM DAILY;
     Route: 048
  3. TRAMADOL [Concomitant]
     Indication: BACK PAIN
     Dosage: 100 MICROGRAM DAILY;
     Route: 048
     Dates: start: 201212
  4. TYLENOL ARTHRITIS [Concomitant]
     Indication: BACK PAIN
     Dosage: TID PRN
     Route: 048
     Dates: start: 201212
  5. ACIDOPHILUS [Concomitant]
     Indication: GLOSSODYNIA
     Route: 048
     Dates: start: 201302

REACTIONS (1)
  - Glossodynia [Not Recovered/Not Resolved]
